FAERS Safety Report 15200199 (Version 1)
Quarter: 2018Q3

REPORT INFORMATION
  Report Type: Spontaneous
  Country: US (occurrence: US)
  Receive Date: 20180726
  Receipt Date: 20180726
  Transmission Date: 20181010
  Serious: Yes (Hospitalization)
  Sender: FDA-Public Use
  Company Number: US-BEH-2018093018

PATIENT
  Age: 3 Year
  Sex: Male
  Weight: 12.25 kg

DRUGS (14)
  1. EPINEPHRINE. [Concomitant]
     Active Substance: EPINEPHRINE
  2. PROGRAF [Concomitant]
     Active Substance: TACROLIMUS\TACROLIMUS ANHYDROUS
  3. LIDOCAINE. [Concomitant]
     Active Substance: LIDOCAINE
  4. ENALAPRIL [Concomitant]
     Active Substance: ENALAPRIL
  5. PREVACID [Concomitant]
     Active Substance: LANSOPRAZOLE
  6. HIZENTRA [Suspect]
     Active Substance: HUMAN IMMUNOGLOBULIN G
     Dosage: 2 G, QOW
     Route: 058
     Dates: start: 20170803
  7. NYSTATIN. [Concomitant]
     Active Substance: NYSTATIN
  8. SULFATRIM [Concomitant]
     Active Substance: SULFAMETHOXAZOLE\TRIMETHOPRIM
  9. MAGNESIUM OXIDE. [Concomitant]
     Active Substance: MAGNESIUM OXIDE
  10. PREDNISONE. [Concomitant]
     Active Substance: PREDNISONE
  11. URSODIOL. [Concomitant]
     Active Substance: URSODIOL
  12. HIZENTRA [Suspect]
     Active Substance: HUMAN IMMUNOGLOBULIN G
     Indication: HYPOGAMMAGLOBULINAEMIA
     Dosage: UNK
     Route: 058
  13. DIPHENHYDRAMINE. [Concomitant]
     Active Substance: DIPHENHYDRAMINE
  14. VALACYCLOVIR [Concomitant]
     Active Substance: VALACYCLOVIR HYDROCHLORIDE

REACTIONS (3)
  - Parainfluenzae virus infection [Unknown]
  - Croup infectious [Unknown]
  - Liver transplant rejection [Unknown]
